FAERS Safety Report 23397123 (Version 2)
Quarter: 2024Q1

REPORT INFORMATION
  Report Type: Spontaneous
  Country: CH (occurrence: CH)
  Receive Date: 20240112
  Receipt Date: 20240124
  Transmission Date: 20240410
  Serious: Yes (Death, Life-Threatening, Hospitalization)
  Sender: FDA-Public Use
  Company Number: CH-SA-SAC20240111001350

PATIENT
  Age: 74 Year
  Sex: Female

DRUGS (1)
  1. ENJAYMO [Suspect]
     Active Substance: SUTIMLIMAB-JOME
     Dosage: UNK
     Route: 065

REACTIONS (3)
  - Streptococcal infection [Fatal]
  - Haemophilus infection [Fatal]
  - Staphylococcal infection [Fatal]
